FAERS Safety Report 23699155 (Version 2)
Quarter: 2024Q2

REPORT INFORMATION
  Report Type: Spontaneous
  Country: US (occurrence: US)
  Receive Date: 20240402
  Receipt Date: 20240611
  Transmission Date: 20240716
  Serious: No
  Sender: FDA-Public Use
  Company Number: US-BRISTOL-MYERS SQUIBB COMPANY-2024-052338

PATIENT
  Age: 48 Year
  Sex: Female
  Weight: 110.2 kg

DRUGS (2)
  1. LENALIDOMIDE [Suspect]
     Active Substance: LENALIDOMIDE
     Indication: Plasma cell myeloma
     Route: 048
     Dates: start: 20221031
  2. LENALIDOMIDE [Suspect]
     Active Substance: LENALIDOMIDE
     Route: 048
     Dates: start: 20240310

REACTIONS (3)
  - Nasopharyngitis [Not Recovered/Not Resolved]
  - Sinus disorder [Recovered/Resolved]
  - Immune system disorder [Not Recovered/Not Resolved]
